FAERS Safety Report 12601669 (Version 1)
Quarter: 2016Q3

REPORT INFORMATION
  Report Type: Spontaneous
  Country: US (occurrence: US)
  Receive Date: 20160728
  Receipt Date: 20160728
  Transmission Date: 20161109
  Serious: Yes (Other)
  Sender: FDA-Public Use
  Company Number: US-UNITED THERAPEUTICS-UNT-2016-004159

PATIENT
  Age: 73 Year
  Sex: Female
  Weight: 77.98 kg

DRUGS (7)
  1. ORENITRAM [Suspect]
     Active Substance: TREPROSTINIL
     Indication: PULMONARY ARTERIAL HYPERTENSION
     Dosage: 1.5 MG, Q12H
     Route: 048
     Dates: start: 20151012
  2. ORENITRAM [Suspect]
     Active Substance: TREPROSTINIL
     Dosage: UNK
  3. WARFARIN [Concomitant]
     Active Substance: WARFARIN
     Indication: PRODUCT USED FOR UNKNOWN INDICATION
  4. ORENITRAM [Suspect]
     Active Substance: TREPROSTINIL
     Dosage: UNK
  5. ORENITRAM [Suspect]
     Active Substance: TREPROSTINIL
     Dosage: 1.5 MG, BID
     Route: 048
  6. ORENITRAM [Suspect]
     Active Substance: TREPROSTINIL
     Dosage: 1.25 MG, BID
     Route: 048
  7. ORENITRAM [Suspect]
     Active Substance: TREPROSTINIL
     Dosage: 1 MG, BID
     Route: 048

REACTIONS (10)
  - Oedema peripheral [Unknown]
  - Pain [Unknown]
  - Fluid retention [Unknown]
  - Tachycardia [Unknown]
  - Nausea [Unknown]
  - Erythema [Unknown]
  - Chills [Unknown]
  - Pain in extremity [Unknown]
  - Hypoaesthesia [Unknown]
  - Feeling cold [Unknown]

NARRATIVE: CASE EVENT DATE: 201603
